FAERS Safety Report 4883529-1 (Version None)
Quarter: 2006Q1

REPORT INFORMATION
  Report Type: 
  Country: None (occurrence: None)
  Receive Date: 20060118
  Receipt Date: 20050805
  Transmission Date: 20060701
  Serious: Yes (Hospitalization, Disabling)
  Sender: FDA-Public Use
  Company Number: US-MERCK-0508USA01483

PATIENT
  Age: 57 Year
  Sex: Female
  Weight: 91 kg

DRUGS (7)
  1. VIOXX [Suspect]
     Indication: BACK PAIN
     Route: 048
     Dates: start: 20020403, end: 20030422
  2. ACTOS [Concomitant]
     Route: 065
  3. GLUCOTROL [Concomitant]
     Route: 065
  4. METFORMIN [Concomitant]
     Route: 065
  5. HYDROCHLOROTHIAZIDE [Concomitant]
     Route: 065
  6. LEVOTHROID [Concomitant]
     Route: 065
  7. POTASSIUM CHLORIDE [Concomitant]
     Route: 065

REACTIONS (4)
  - CEREBROVASCULAR ACCIDENT [None]
  - ELECTROCARDIOGRAM ST SEGMENT ABNORMAL [None]
  - HAND DEFORMITY [None]
  - MUSCULOSKELETAL DISCOMFORT [None]
